APPROVED DRUG PRODUCT: LODINE
Active Ingredient: ETODOLAC
Strength: 300MG
Dosage Form/Route: CAPSULE;ORAL
Application: N018922 | Product #003
Applicant: WYETH PHARMACEUTICALS INC
Approved: Jan 31, 1991 | RLD: Yes | RS: No | Type: DISCN